FAERS Safety Report 6088890-0 (Version None)
Quarter: 2009Q1

REPORT INFORMATION
  Report Type: 
  Country: None (occurrence: None)
  Receive Date: 20090220
  Receipt Date: 20090220
  Transmission Date: 20090719
  Serious: Yes (Hospitalization)
  Sender: FDA-Public Use
  Company Number: None

PATIENT
  Sex: Male
  Weight: 118 kg

DRUGS (9)
  1. CYCLOPHOSPHAMIDE [Suspect]
     Dosage: 2200 MG
  2. CYTARABINE [Suspect]
     Dosage: 40 MG
  3. DEXAMETHASONE [Suspect]
     Dosage: 110 MG
  4. DOXORUBICIN HYDROCHLORIDE [Suspect]
     Dosage: 108 MG
  5. G-CSF (FILGRASTIM, AMGEN) [Suspect]
     Dosage: 4800 MCG
  6. LEUCOVORIN CALCIUM [Suspect]
     Dosage: 266 MG
  7. METHOTREXATE [Suspect]
     Dosage: 3280 MG
  8. RITUXIMAB (MOABC2B8 ANTI CD2O, CHIMERIC) [Suspect]
     Dosage: 800 MG
  9. VINCRISTINE SULFATE [Suspect]
     Dosage: 2 MG

REACTIONS (34)
  - ACUTE MYOCARDIAL INFARCTION [None]
  - BACTERIA BLOOD IDENTIFIED [None]
  - BRONCHOSPASM [None]
  - CARDIAC FAILURE [None]
  - CATHETER RELATED COMPLICATION [None]
  - CONFUSIONAL STATE [None]
  - CULTURE URINE POSITIVE [None]
  - CYSTITIS HAEMORRHAGIC [None]
  - DIARRHOEA [None]
  - DIZZINESS [None]
  - DYSPHAGIA [None]
  - ESCHERICHIA INFECTION [None]
  - FATIGUE [None]
  - FEBRILE NEUTROPENIA [None]
  - FLUID OVERLOAD [None]
  - GENERAL PHYSICAL HEALTH DETERIORATION [None]
  - HYPERGLYCAEMIA [None]
  - ILEUS [None]
  - INCISION SITE ABSCESS [None]
  - INFECTION [None]
  - ISCHAEMIC CARDIOMYOPATHY [None]
  - JUGULAR VEIN THROMBOSIS [None]
  - KLEBSIELLA INFECTION [None]
  - LARYNGEAL OEDEMA [None]
  - LEFT VENTRICULAR DYSFUNCTION [None]
  - MUCOSAL INFLAMMATION [None]
  - PLATELET COUNT DECREASED [None]
  - PLEURAL EFFUSION [None]
  - POST LUMBAR PUNCTURE SYNDROME [None]
  - PSEUDOMONAS INFECTION [None]
  - PULMONARY OEDEMA [None]
  - RIGHT VENTRICULAR DYSFUNCTION [None]
  - STAPHYLOCOCCAL INFECTION [None]
  - TYPE 2 DIABETES MELLITUS [None]
